FAERS Safety Report 14221580 (Version 3)
Quarter: 2021Q1

REPORT INFORMATION
  Report Type: Spontaneous
  Country: US (occurrence: US)
  Receive Date: 20171123
  Receipt Date: 20210205
  Transmission Date: 20210419
  Serious: Yes (Hospitalization, Other)
  Sender: FDA-Public Use
  Company Number: PHEH2017US037344

PATIENT
  Age: 62 Year
  Sex: Female

DRUGS (1)
  1. MEKINIST [Suspect]
     Active Substance: TRAMETINIB DIMETHYL SULFOXIDE
     Indication: MALIGNANT MELANOMA
     Dosage: 1.5 MG, QD
     Route: 048
     Dates: start: 201706

REACTIONS (4)
  - Swelling [Unknown]
  - Sepsis [Unknown]
  - Rash [Unknown]
  - Cellulitis [Unknown]

NARRATIVE: CASE EVENT DATE: 20170619
